FAERS Safety Report 7645772-8 (Version None)
Quarter: 2011Q3

REPORT INFORMATION
  Report Type: 
  Country: None (occurrence: None)
  Receive Date: 20110729
  Receipt Date: 20110718
  Transmission Date: 20111222
  Serious: Yes (Other)
  Sender: FDA-Public Use
  Company Number: US-ELI_LILLY_AND_COMPANY-US201106001824

PATIENT
  Sex: Female
  Weight: 60 kg

DRUGS (14)
  1. FAMOTIDINE [Concomitant]
     Dosage: 10 MG, QD
  2. VITAMIN B COMPLEX CAP [Concomitant]
     Dosage: UNK UNK, QD
  3. SIMVASTATIN [Concomitant]
     Dosage: 20 MG, EACH EVENING
  4. DILANTIN [Concomitant]
     Dosage: 100 MG, PRN
  5. ASPIRIN [Concomitant]
     Dosage: 81 MG, QD
  6. XANAX [Concomitant]
     Dosage: 0.25 MG, PRN
  7. ASCORBIC ACID [Concomitant]
     Dosage: 500 MG, QD
  8. VASOTEC [Concomitant]
  9. IRON SULFATETHIAMIN COMPOUND TAB [Concomitant]
     Dosage: 65 MG, QD
  10. HUMALOG [Suspect]
     Indication: TYPE 1 DIABETES MELLITUS
     Dosage: UNK UNK, PRN
     Route: 058
  11. ESTROVEN                           /02150901/ [Concomitant]
     Dosage: UNK, QD
  12. CALCIUM +VIT D [Concomitant]
     Dosage: UNK, QD
  13. EVISTA [Concomitant]
     Dosage: 60 MG, QD
  14. MULTI-VITAMIN [Concomitant]
     Dosage: UNK, QD

REACTIONS (9)
  - URINE KETONE BODY PRESENT [None]
  - BLOOD GLUCOSE INCREASED [None]
  - POLYDIPSIA [None]
  - FATIGUE [None]
  - POLYURIA [None]
  - NAUSEA [None]
  - MALAISE [None]
  - DIABETIC KETOACIDOSIS [None]
  - DRUG INEFFECTIVE [None]
